FAERS Safety Report 8746517 (Version 3)
Quarter: 2014Q3

REPORT INFORMATION
  Report Type: Spontaneous
  Country: BR (occurrence: BR)
  Receive Date: 20120827
  Receipt Date: 20140812
  Transmission Date: 20150326
  Serious: Yes (Hospitalization)
  Sender: FDA-Public Use
  Company Number: BR-ELI_LILLY_AND_COMPANY-BR201208004783

PATIENT
  Age: 71 Year
  Sex: Female
  Weight: 45 kg

DRUGS (7)
  1. FORTEO [Suspect]
     Active Substance: TERIPARATIDE
     Indication: OSTEOPOROSIS
     Dosage: 20 UG, QD
     Route: 058
     Dates: start: 200911
  2. SINVASTATINA [Concomitant]
     Dosage: 40 MG, UNKNOWN
     Route: 065
  3. FORTEO [Suspect]
     Active Substance: TERIPARATIDE
     Dosage: 20 UG, QD
     Route: 058
     Dates: start: 20120801
  4. OMEPRAZOL [Concomitant]
     Active Substance: OMEPRAZOLE
     Dosage: 40 MG, UNKNOWN
     Route: 065
  5. DIOVAN [Concomitant]
     Active Substance: VALSARTAN
     Dosage: 160 MG, UNKNOWN
     Route: 065
  6. BACLOFEN. [Concomitant]
     Active Substance: BACLOFEN
     Dosage: 10 MG, UNKNOWN
     Route: 065
  7. AAS [Concomitant]
     Active Substance: ASPIRIN
     Dosage: 100 MG, UNKNOWN
     Route: 065
     Dates: start: 201004

REACTIONS (12)
  - Hypokinesia [Recovering/Resolving]
  - Headache [Unknown]
  - Anaemia [Not Recovered/Not Resolved]
  - Memory impairment [Recovering/Resolving]
  - Muscular weakness [Not Recovered/Not Resolved]
  - Depression [Unknown]
  - Arthralgia [Not Recovered/Not Resolved]
  - Anxiety [Unknown]
  - Venous occlusion [Unknown]
  - Hypertension [Unknown]
  - Cerebrovascular accident [Recovered/Resolved with Sequelae]
  - Incorrect drug administration duration [Unknown]

NARRATIVE: CASE EVENT DATE: 2011
